FAERS Safety Report 9059361 (Version 2)
Quarter: 2013Q1

REPORT INFORMATION
  Report Type: Spontaneous
  Country: US (occurrence: US)
  Receive Date: 20130211
  Receipt Date: 20130225
  Transmission Date: 20140127
  Serious: No
  Sender: FDA-Public Use
  Company Number: US-VERTEX PHARMACEUTICALS INC.-2013-001806

PATIENT
  Sex: Male
  Weight: 63 kg

DRUGS (4)
  1. INCIVEK [Suspect]
     Indication: HEPATITIS C
     Dosage: 750 MG, TID
     Route: 048
     Dates: start: 20121201
  2. PEGINTERFERON ALFA [Suspect]
     Indication: HEPATITIS C
     Dosage: 180 ?G, QW
     Route: 058
     Dates: start: 20121201
  3. COPEGUS [Suspect]
     Indication: HEPATITIS C
     Dosage: 600 MG AM, 400 MG PM
     Route: 048
     Dates: start: 20121201
  4. COPEGUS [Suspect]
     Dosage: 400 MG AM, 200 MG PM
     Route: 048
     Dates: start: 201301

REACTIONS (2)
  - Immunodeficiency [Not Recovered/Not Resolved]
  - Anaemia [Recovered/Resolved]
